FAERS Safety Report 7938400-5 (Version None)
Quarter: 2011Q4

REPORT INFORMATION
  Report Type: 
  Country: None (occurrence: None)
  Receive Date: 20111123
  Receipt Date: 20111117
  Transmission Date: 20120403
  Serious: Yes (Other)
  Sender: FDA-Public Use
  Company Number: US-PFIZER INC-2011283133

PATIENT
  Age: 16 Year
  Sex: Female
  Weight: 63.492 kg

DRUGS (4)
  1. TRACLEER [Concomitant]
     Dosage: UNK
  2. TYVASO [Suspect]
     Indication: PULMONARY ARTERIAL HYPERTENSION
     Dosage: 216 MCG (54 MCG, 4 IN 1 D)
     Dates: start: 20110427
  3. LEXAPRO [Suspect]
     Dosage: UNK
  4. REVATIO [Suspect]
     Dosage: UNK

REACTIONS (1)
  - EPISTAXIS [None]
